FAERS Safety Report 13450029 (Version 1)
Quarter: 2017Q2

REPORT INFORMATION
  Report Type: Spontaneous
  Country: US (occurrence: US)
  Receive Date: 20170417
  Receipt Date: 20170417
  Transmission Date: 20170830
  Serious: No
  Sender: FDA-Public Use
  Company Number: US-BION-20160525

PATIENT
  Age: 56 Year
  Sex: Female
  Weight: 56.7 kg

DRUGS (2)
  1. ALEVE [Suspect]
     Active Substance: NAPROXEN SODIUM
     Indication: TOOTHACHE
     Route: 048
     Dates: start: 20160909
  2. ZETIA [Concomitant]
     Active Substance: EZETIMIBE

REACTIONS (2)
  - Overdose [Unknown]
  - Drug prescribing error [Unknown]

NARRATIVE: CASE EVENT DATE: 20160909
